FAERS Safety Report 5009756-0 (Version None)
Quarter: 2006Q2

REPORT INFORMATION
  Report Type: 
  Country: None (occurrence: None)
  Receive Date: 20060524
  Receipt Date: 20060316
  Transmission Date: 20061013
  Serious: Yes (Other)
  Sender: FDA-Public Use
  Company Number: US-ROCHE-440674

PATIENT
  Age: 48 Year
  Weight: 112 kg

DRUGS (2)
  1. PEGASYS [Suspect]
     Dosage: SUBCUTANEOUS PEG-INTERFERON ALFA 2A, 180 MCG WEEKLY AND RIBAVIRIN, 1200 MG DAILY.
     Route: 050
     Dates: start: 20060209, end: 20060302
  2. PEGASYS [Suspect]
     Route: 050

REACTIONS (1)
  - FACIAL PALSY [None]
